FAERS Safety Report 9476062 (Version 1)
Quarter: 2013Q3

REPORT INFORMATION
  Report Type: Spontaneous
  Country: US (occurrence: US)
  Receive Date: 20130826
  Receipt Date: 20130826
  Transmission Date: 20140515
  Serious: Yes (Other)
  Sender: FDA-Public Use
  Company Number: US-SHIRE-ALL1-2013-05588

PATIENT
  Sex: Female

DRUGS (2)
  1. INTUNIV [Suspect]
     Indication: PRODUCT USED FOR UNKNOWN INDICATION
     Dosage: 2 MG, UNKNOWN
     Route: 048
  2. INTUNIV [Suspect]
     Dosage: 3 MG, UNKNOWN
     Route: 048

REACTIONS (1)
  - Intentional overdose [Unknown]
